FAERS Safety Report 8917808 (Version 7)
Quarter: 2015Q2

REPORT INFORMATION
  Report Type: Report from Study
  Country: IN (occurrence: IN)
  Receive Date: 20121120
  Receipt Date: 20150611
  Transmission Date: 20150821
  Serious: Yes (Hospitalization)
  Sender: FDA-Public Use
  Company Number: IN-B.I. PHARMACEUTICALS,INC./RIDGEFIELD-2012-BP-25252BP

PATIENT
  Age: 58 Year
  Sex: Female
  Weight: 43 kg

DRUGS (11)
  1. SERENACE [Concomitant]
     Active Substance: HALOPERIDOL
     Indication: DYSKINESIA
     Dosage: 10 MG
     Route: 048
     Dates: start: 20120629
  2. GLARITUS [Concomitant]
     Indication: DIABETES MELLITUS
     Dosage: 15 U
     Route: 058
     Dates: start: 201110
  3. CLOPIDOGREL [Concomitant]
     Active Substance: CLOPIDOGREL BISULFATE
     Indication: CORONARY ARTERY DISEASE
     Dosage: 75 MG
     Route: 048
     Dates: start: 20111029
  4. ROSUVAS [Concomitant]
     Indication: CORONARY ARTERY DISEASE
     Dosage: 20 MG
     Route: 048
     Dates: start: 20111029
  5. PACITANE [Concomitant]
     Indication: DYSKINESIA
     Dosage: 4 MG
     Route: 048
     Dates: start: 20120629
  6. LONAZEP [Concomitant]
     Indication: DYSKINESIA
     Dosage: 0.5 MG
     Route: 048
     Dates: start: 20110908
  7. ASPRIN [Concomitant]
     Active Substance: ASPIRIN
     Indication: CORONARY ARTERY DISEASE
     Dosage: 150 MG
     Route: 048
     Dates: start: 20111029
  8. BI 10773 [Suspect]
     Active Substance: EMPAGLIFLOZIN
     Indication: DIABETES MELLITUS
     Route: 048
     Dates: start: 20111205, end: 20120912
  9. CONCOR [Concomitant]
     Active Substance: BISOPROLOL FUMARATE
     Indication: CORONARY ARTERY DISEASE
     Dosage: 2.5 MG
     Route: 048
     Dates: start: 20111219
  10. FRUSELAC [Concomitant]
     Active Substance: FUROSEMIDE\SPIRONOLACTONE
     Indication: CORONARY ARTERY DISEASE
     Dosage: 25 MG
     Route: 048
     Dates: start: 20111029
  11. LACTIFIBER [Concomitant]
     Indication: CONSTIPATION
     Dosage: DOSE PER APPLICATION AND DAILY DOSE:3 TSP
     Route: 048
     Dates: start: 20120629

REACTIONS (2)
  - Orthopnoea [Unknown]
  - Urosepsis [Unknown]

NARRATIVE: CASE EVENT DATE: 20120912
